FAERS Safety Report 9496461 (Version 3)
Quarter: 2013Q3

REPORT INFORMATION
  Report Type: Spontaneous
  Country: AU (occurrence: AU)
  Receive Date: 20130904
  Receipt Date: 20130910
  Transmission Date: 20140515
  Serious: Yes (Hospitalization, Other)
  Sender: FDA-Public Use
  Company Number: PHHY2013AU086739

PATIENT
  Age: 71 Year
  Sex: Female

DRUGS (2)
  1. AFINITOR [Suspect]
     Indication: BREAST CANCER
     Dosage: 10 MG, DAILY
     Route: 048
     Dates: start: 20130701
  2. AFINITOR [Suspect]
     Route: 048

REACTIONS (4)
  - Vaginal ulceration [Recovering/Resolving]
  - Vaginal haemorrhage [Recovering/Resolving]
  - Atrophic vulvovaginitis [Recovering/Resolving]
  - Rash [Recovering/Resolving]
